FAERS Safety Report 5719557-3 (Version None)
Quarter: 2008Q2

REPORT INFORMATION
  Report Type: 
  Country: None (occurrence: None)
  Receive Date: 20080428
  Receipt Date: 20080414
  Transmission Date: 20081010
  Serious: Yes (Death, Hospitalization, Congenital Anomaly)
  Sender: FDA-Public Use
  Company Number: A0685052A

PATIENT
  Sex: Female
  Weight: 3.1 kg

DRUGS (5)
  1. PAXIL [Suspect]
     Indication: POSTPARTUM DEPRESSION
     Dosage: 20MG PER DAY
     Dates: start: 19951015, end: 19961101
  2. VITAMIN TAB [Concomitant]
  3. IBUPROFEN [Concomitant]
  4. DARVOCET [Concomitant]
  5. TYLENOL [Concomitant]

REACTIONS (35)
  - ACIDOSIS [None]
  - ALKALOSIS [None]
  - ANAEMIA NEONATAL [None]
  - APNOEA [None]
  - ATRIAL SEPTAL DEFECT [None]
  - ATRIOVENTRICULAR BLOCK COMPLETE [None]
  - BICUSPID AORTIC VALVE [None]
  - BRAIN HYPOXIA [None]
  - CARDIAC MURMUR [None]
  - CARDIOMEGALY [None]
  - CEREBRAL INFARCTION [None]
  - CEREBRAL PALSY [None]
  - CEREBROVASCULAR ACCIDENT [None]
  - COARCTATION OF THE AORTA [None]
  - CONGENITAL HIP DEFORMITY [None]
  - CONVULSION [None]
  - DEATH [None]
  - DRUG EXPOSURE DURING PREGNANCY [None]
  - ENCEPHALOPATHY [None]
  - GENERALISED OEDEMA [None]
  - HYPOCALCAEMIA [None]
  - HYPOPLASTIC LEFT HEART SYNDROME [None]
  - KARYOTYPE ANALYSIS ABNORMAL [None]
  - MALAISE [None]
  - NERVOUS SYSTEM DISORDER [None]
  - PATENT DUCTUS ARTERIOSUS [None]
  - PLEURAL EFFUSION [None]
  - PSEUDOMONAS INFECTION [None]
  - PULMONARY OEDEMA [None]
  - RESPIRATORY DISORDER NEONATAL [None]
  - SUBDURAL HAEMATOMA [None]
  - THROMBOCYTOPENIA NEONATAL [None]
  - TRACHEITIS [None]
  - TRICUSPID VALVE INCOMPETENCE [None]
  - VENTRICULAR SEPTAL DEFECT [None]
